FAERS Safety Report 6807315-8 (Version None)
Quarter: 2010Q2

REPORT INFORMATION
  Report Type: 
  Country: None (occurrence: None)
  Receive Date: 20100629
  Receipt Date: 20080910
  Transmission Date: 20101027
  Serious: No
  Sender: FDA-Public Use
  Company Number: US-PFIZER INC-2008077501

PATIENT
  Sex: Male
  Weight: 71.363 kg

DRUGS (3)
  1. VIAGRA [Suspect]
     Indication: ERECTILE DYSFUNCTION
     Dates: end: 20080801
  2. LISINOPRIL [Concomitant]
     Indication: HYPERTENSION
  3. TETRACYCLINE [Concomitant]
     Indication: ROSACEA

REACTIONS (1)
  - VISION BLURRED [None]
